FAERS Safety Report 8622330-X (Version None)
Quarter: 2012Q3

REPORT INFORMATION
  Report Type: 
  Country: None (occurrence: None)
  Receive Date: 20120827
  Receipt Date: 20120816
  Transmission Date: 20120928
  Serious: Yes (Other)
  Sender: FDA-Public Use
  Company Number: US-BIOGENIDEC-2012BI032734

PATIENT
  Age: 1 Day
  Weight: 2 kg

DRUGS (1)
  1. AVONEX [Suspect]
     Indication: MATERNAL EXPOSURE TIMING UNSPECIFIED
     Route: 064
     Dates: start: 20100928, end: 20110301

REACTIONS (2)
  - MATERNAL DRUGS AFFECTING FOETUS [None]
  - LOW BIRTH WEIGHT BABY [None]
